FAERS Safety Report 15813492 (Version 6)
Quarter: 2020Q1

REPORT INFORMATION
  Report Type: Spontaneous
  Country: US (occurrence: US)
  Receive Date: 20190111
  Receipt Date: 20200115
  Transmission Date: 20200409
  Serious: No
  Sender: FDA-Public Use
  Company Number: US-PFIZER INC-2019011758

PATIENT
  Age: 75 Year
  Sex: Female
  Weight: 44 kg

DRUGS (14)
  1. NEURONTIN [Suspect]
     Active Substance: GABAPENTIN
     Indication: NEURALGIA
     Dosage: 300 MG, 1X/DAY
     Dates: start: 20181205
  2. NEURONTIN [Suspect]
     Active Substance: GABAPENTIN
     Dosage: 300 MG, 1X/DAY
     Dates: start: 201911, end: 2019
  3. INSPRA [Concomitant]
     Active Substance: EPLERENONE
     Indication: HYPERTENSION
     Dosage: 25 MG, 2X/DAY
     Route: 048
  4. EPLERENONE. [Concomitant]
     Active Substance: EPLERENONE
     Dosage: UNK
  5. NEURONTIN [Suspect]
     Active Substance: GABAPENTIN
     Dosage: 800 MG, DAILY (100 MG EACH WHITE. 2 CAPSULES FOUR TIMES A DAY)
     Dates: start: 2019
  6. NEURONTIN [Suspect]
     Active Substance: GABAPENTIN
     Dosage: 700 MG, DAILY
  7. NEURONTIN [Suspect]
     Active Substance: GABAPENTIN
     Dosage: 400 MG, UNK
     Dates: start: 2019, end: 2019
  8. NEURONTIN [Suspect]
     Active Substance: GABAPENTIN
     Dosage: UNK, DAILY [900-1000MG PER DAY]
  9. NEURONTIN [Suspect]
     Active Substance: GABAPENTIN
     Dosage: 900 MG, DAILY (100MG CAPSULE BY MOUTH NINE TIMES PER DAY)
     Route: 048
     Dates: start: 201911
  10. CRESTOR [Concomitant]
     Active Substance: ROSUVASTATIN CALCIUM
     Indication: BLOOD CHOLESTEROL INCREASED
     Dosage: 5 MG, ALTERNATE DAY (EVERY OTHER DAY)
     Route: 048
  11. NEURONTIN [Suspect]
     Active Substance: GABAPENTIN
     Dosage: 200 MG, 4X/DAY
  12. NEURONTIN [Suspect]
     Active Substance: GABAPENTIN
     Indication: NEUROGENIC BLADDER
     Dosage: 500 MG, DAILY
  13. NEURONTIN [Suspect]
     Active Substance: GABAPENTIN
     Indication: MULTIPLE SCLEROSIS
     Dosage: 500 MG, UNK
     Dates: start: 2001
  14. NEURONTIN [Suspect]
     Active Substance: GABAPENTIN
     Indication: PAIN
     Dosage: 600 MG, DAILY

REACTIONS (4)
  - Off label use [Unknown]
  - Balance disorder [Recovering/Resolving]
  - Drug ineffective for unapproved indication [Unknown]
  - Dizziness [Recovering/Resolving]

NARRATIVE: CASE EVENT DATE: 201911
